FAERS Safety Report 5216629-7 (Version None)
Quarter: 2007Q1

REPORT INFORMATION
  Report Type: 
  Country: None (occurrence: None)
  Receive Date: 20061130
  Receipt Date: 20060807
  Transmission Date: 20070707
  Serious: Yes (Hospitalization, Other)
  Sender: FDA-Public Use
  Company Number: US200608002089

PATIENT
  Sex: Male
  Weight: 81.6 kg

DRUGS (1)
  1. ZYPREXA [Suspect]
     Dates: start: 20010101, end: 20040101

REACTIONS (4)
  - BLOOD TRIGLYCERIDES INCREASED [None]
  - DIABETES MELLITUS [None]
  - LOSS OF CONSCIOUSNESS [None]
  - METABOLIC DISORDER [None]
